FAERS Safety Report 7132443-X (Version None)
Quarter: 2010Q4

REPORT INFORMATION
  Report Type: 
  Country: None (occurrence: None)
  Receive Date: 20101202
  Receipt Date: 20101125
  Transmission Date: 20110411
  Serious: Yes (Hospitalization)
  Sender: FDA-Public Use
  Company Number: JP-EISAI INC.-E3810-04238-SPO-JP

PATIENT
  Age: 53 Year
  Sex: Female

DRUGS (2)
  1. PARIET (RABEPRAZOLE) [Suspect]
     Route: 048
     Dates: start: 20100823, end: 20101017
  2. CHINESE HERBAL MEDICINE [Concomitant]
     Route: 048
     Dates: start: 20100823, end: 20101017

REACTIONS (1)
  - HEPATIC FAILURE [None]
